FAERS Safety Report 25794823 (Version 2)
Quarter: 2025Q3

REPORT INFORMATION
  Report Type: Spontaneous
  Country: JP (occurrence: JP)
  Receive Date: 20250912
  Receipt Date: 20250925
  Transmission Date: 20251020
  Serious: Yes (Death)
  Sender: VIIV
  Company Number: JP-VIIV HEALTHCARE-JP2025JPN117488

PATIENT
  Sex: Male

DRUGS (3)
  1. VOCABRIA [Suspect]
     Active Substance: CABOTEGRAVIR SODIUM
     Indication: HIV infection
     Dosage: 600 MMOL/G, Q2M
     Dates: start: 202408
  2. RILPIVIRINE [Suspect]
     Active Substance: RILPIVIRINE
     Indication: HIV infection
     Dosage: 900 MMOL/G, Q2M
     Dates: start: 202408
  3. VOCABRIA [Concomitant]
     Active Substance: CABOTEGRAVIR SODIUM

REACTIONS (2)
  - Marasmus [Fatal]
  - Dysphagia [Unknown]
